FAERS Safety Report 4730032-5 (Version None)
Quarter: 2005Q3

REPORT INFORMATION
  Report Type: 
  Country: None (occurrence: None)
  Receive Date: 20050728
  Receipt Date: 20050715
  Transmission Date: 20060218
  Serious: Yes (Other)
  Sender: FDA-Public Use
  Company Number: 216149

PATIENT
  Age: 61 Year
  Sex: Female

DRUGS (1)
  1. AVASTIN [Suspect]
     Indication: COLON CANCER
     Dates: start: 20040101, end: 20050101

REACTIONS (3)
  - DISEASE PROGRESSION [None]
  - DRUG EFFECT DECREASED [None]
  - NEUROPATHY PERIPHERAL [None]
